FAERS Safety Report 13377521 (Version 3)
Quarter: 2018Q2

REPORT INFORMATION
  Report Type: Report from Study
  Country: US (occurrence: US)
  Receive Date: 20170328
  Receipt Date: 20180618
  Transmission Date: 20180711
  Serious: Yes (Hospitalization, Other)
  Sender: FDA-Public Use
  Company Number: US-JNJFOC-20170328902

PATIENT
  Age: 72 Year
  Sex: Female

DRUGS (3)
  1. IMBRUVICA [Suspect]
     Active Substance: IBRUTINIB
     Indication: CHRONIC LYMPHOCYTIC LEUKAEMIA
     Route: 048
  2. METHOTREXATE. [Suspect]
     Active Substance: METHOTREXATE
     Indication: OSTEOARTHRITIS
     Route: 065
     Dates: start: 201706
  3. METHOTREXATE. [Suspect]
     Active Substance: METHOTREXATE
     Indication: RHEUMATOID ARTHRITIS
     Route: 065
     Dates: start: 201706

REACTIONS (9)
  - Arthralgia [Unknown]
  - Adverse reaction [Unknown]
  - Bone density decreased [Unknown]
  - Diabetes mellitus [Not Recovered/Not Resolved]
  - Gait disturbance [Unknown]
  - Pain [Unknown]
  - Cerebrovascular accident [Not Recovered/Not Resolved]
  - Spinal column stenosis [Unknown]
  - Contusion [Unknown]

NARRATIVE: CASE EVENT DATE: 2017
